FAERS Safety Report 4815785-X (Version None)
Quarter: 2005Q4

REPORT INFORMATION
  Report Type: 
  Country: None (occurrence: None)
  Receive Date: 20051031
  Receipt Date: 20051020
  Transmission Date: 20060501
  Serious: Yes (Other)
  Sender: FDA-Public Use
  Company Number: FR-GLAXOSMITHKLINE-B0397763A

PATIENT
  Age: 63 Year
  Sex: Male

DRUGS (3)
  1. ZOVIRAX [Suspect]
     Indication: HERPES OPHTHALMIC
     Dosage: 800MG TWICE PER DAY
     Route: 048
     Dates: start: 20051013, end: 20051020
  2. INSULIN [Concomitant]
     Indication: DIABETES MELLITUS INSULIN-DEPENDENT
  3. PRINIVIL [Concomitant]
     Indication: HYPERTENSION

REACTIONS (3)
  - DIABETES MELLITUS INADEQUATE CONTROL [None]
  - NAUSEA [None]
  - RASH [None]
